FAERS Safety Report 9391607 (Version 1)
Quarter: 2013Q3

REPORT INFORMATION
  Report Type: Spontaneous
  Country: JP (occurrence: JP)
  Receive Date: 20130709
  Receipt Date: 20130709
  Transmission Date: 20140515
  Serious: Yes (Death)
  Sender: FDA-Public Use
  Company Number: JP-SUCAMPO PHARMA AMERICAS, INC-SPI201300450

PATIENT
  Age: 76 Year
  Sex: Male

DRUGS (6)
  1. AMITIZA [Suspect]
     Indication: CONSTIPATION
     Dosage: 24 MCG, BID
     Route: 048
     Dates: start: 20130607, end: 20130619
  2. NITOROL R [Concomitant]
     Indication: MYOCARDIAL INFARCTION
     Dosage: 20 MG, UNK
     Route: 048
     Dates: start: 20130607, end: 20130623
  3. NIKORANMART [Concomitant]
     Indication: MYOCARDIAL INFARCTION
     Dosage: 5 MG, UNK
     Route: 048
     Dates: start: 20130607, end: 20130623
  4. KIPRES [Concomitant]
     Indication: ASTHMA
     Dosage: 10 MG, QD
     Route: 048
     Dates: start: 20130607, end: 20130613
  5. NEOPHYLLIN [Concomitant]
     Indication: ASTHMA
     Dosage: 100 MG, UNK
     Route: 048
     Dates: start: 20130607, end: 20130623
  6. UNKNOWN [Concomitant]
     Indication: ASTHMA
     Dosage: 200 MG, QD
     Route: 048
     Dates: start: 20130607, end: 20130623

REACTIONS (2)
  - Hypokalaemia [Unknown]
  - Death [Fatal]
